FAERS Safety Report 12583476 (Version 1)
Quarter: 2016Q3

REPORT INFORMATION
  Report Type: Spontaneous
  Country: DE (occurrence: DE)
  Receive Date: 20160722
  Receipt Date: 20160722
  Transmission Date: 20161109
  Serious: Yes (Other)
  Sender: FDA-Public Use
  Company Number: DE-SA-2016SA130426

PATIENT
  Age: 50 Year
  Sex: Female
  Weight: 112 kg

DRUGS (4)
  1. CLEXANE [Suspect]
     Active Substance: ENOXAPARIN SODIUM
     Indication: THROMBOSIS PROPHYLAXIS
     Route: 058
     Dates: start: 20160531, end: 20160616
  2. HYGROTON [Concomitant]
     Active Substance: CHLORTHALIDONE
     Route: 065
  3. PANTOPRAZOL WINTHROP [Concomitant]
     Route: 065
  4. DEHYDRO SANOL TRI [Concomitant]
     Route: 065

REACTIONS (1)
  - Hypokalaemia [Recovered/Resolved]

NARRATIVE: CASE EVENT DATE: 20160602
